FAERS Safety Report 20724237 (Version 2)
Quarter: 2022Q2

REPORT INFORMATION
  Report Type: Spontaneous
  Country: JP (occurrence: JP)
  Receive Date: 20220419
  Receipt Date: 20220426
  Transmission Date: 20220721
  Serious: Yes (Death)
  Sender: FDA-Public Use
  Company Number: JP-ALLERGAN-2212160US

PATIENT
  Sex: Male

DRUGS (1)
  1. ASENAPINE MALEATE [Suspect]
     Active Substance: ASENAPINE MALEATE
     Indication: Delirium
     Dosage: 5 MG, QD
     Route: 060

REACTIONS (2)
  - Death [Fatal]
  - Off label use [Unknown]
